FAERS Safety Report 5737485-4 (Version None)
Quarter: 2008Q2

REPORT INFORMATION
  Report Type: 
  Country: None (occurrence: None)
  Receive Date: 20080514
  Receipt Date: 20080507
  Transmission Date: 20081010
  Serious: Yes (Other)
  Sender: FDA-Public Use
  Company Number: KR-TEVA-171322ISR

PATIENT
  Age: 67 Year
  Sex: Female

DRUGS (4)
  1. METHOTREXATE [Suspect]
     Indication: DERMATOMYOSITIS
     Dates: start: 19990101
  2. METHOTREXATE [Suspect]
  3. PREDNISOLONE [Concomitant]
  4. HYDROXYCHLOROQUINE SULFATE [Concomitant]

REACTIONS (11)
  - ALANINE AMINOTRANSFERASE INCREASED [None]
  - ANAEMIA [None]
  - ANOREXIA [None]
  - ASPARTATE AMINOTRANSFERASE INCREASED [None]
  - BLISTER [None]
  - LEUKOPENIA [None]
  - MOUTH ULCERATION [None]
  - NAUSEA [None]
  - OVERDOSE [None]
  - RASH ERYTHEMATOUS [None]
  - THROMBOCYTOPENIA [None]
